FAERS Safety Report 18690541 (Version 1)
Quarter: 2021Q1

REPORT INFORMATION
  Report Type: Spontaneous
  Country: US (occurrence: US)
  Receive Date: 20210101
  Receipt Date: 20210101
  Transmission Date: 20210419
  Serious: No
  Sender: FDA-Public Use
  Company Number: US-GLAXOSMITHKLINE-US2020AMR254726

PATIENT
  Sex: Female

DRUGS (1)
  1. ZEJULA [Suspect]
     Active Substance: NIRAPARIB
     Indication: OVARIAN CANCER
     Dosage: 200 MG, QD
     Route: 065
     Dates: start: 20201209, end: 20201211

REACTIONS (7)
  - Adverse drug reaction [Unknown]
  - Abdominal pain upper [Unknown]
  - Back pain [Unknown]
  - Drug hypersensitivity [Unknown]
  - Vomiting [Unknown]
  - Heart rate increased [Unknown]
  - Flushing [Unknown]
